FAERS Safety Report 16538801 (Version 2)
Quarter: 2020Q1

REPORT INFORMATION
  Report Type: Report from Study
  Country: DE (occurrence: DE)
  Receive Date: 20190708
  Receipt Date: 20200214
  Transmission Date: 20200409
  Serious: Yes (Other)
  Sender: FDA-Public Use
  Company Number: DE-ROCHE-2349175

PATIENT
  Age: 64 Year
  Sex: Male
  Weight: 85 kg

DRUGS (23)
  1. LUCENTIS [Suspect]
     Active Substance: RANIBIZUMAB
     Indication: VISUAL IMPAIRMENT
     Dosage: 0.5 MG, 1X IN RIGHT EYE
     Route: 031
     Dates: start: 20161205
  2. LUCENTIS [Suspect]
     Active Substance: RANIBIZUMAB
     Dosage: 0.5 MG, 1X IN LEFT EYE
     Route: 031
     Dates: start: 20170717
  3. LUCENTIS [Suspect]
     Active Substance: RANIBIZUMAB
     Dosage: 0.5 MG, 1X IN LEFT EYE
     Route: 031
     Dates: start: 20180830
  4. LUCENTIS [Suspect]
     Active Substance: RANIBIZUMAB
     Dosage: 0.5 MG, 1X IN RIGHT EYE
     Route: 031
     Dates: start: 20180920, end: 20180920
  5. LUCENTIS [Suspect]
     Active Substance: RANIBIZUMAB
     Dosage: 0.5 MG, 1X IN LEFT EYE
     Route: 031
     Dates: start: 20170327
  6. LUCENTIS [Suspect]
     Active Substance: RANIBIZUMAB
     Dosage: 0.5 MG, 1X IN LEFT EYE
     Route: 031
     Dates: start: 20180524
  7. LUCENTIS [Suspect]
     Active Substance: RANIBIZUMAB
     Dosage: 0.5 MG, 1X IN LEFT EYE
     Route: 031
     Dates: start: 20171012
  8. LUCENTIS [Suspect]
     Active Substance: RANIBIZUMAB
     Dosage: 0.5 MG, 1X IN LEFT EYE
     Route: 031
     Dates: start: 20180405
  9. LUCENTIS [Suspect]
     Active Substance: RANIBIZUMAB
     Dosage: 0.5 MG, 1X IN RIGHT EYE
     Route: 031
     Dates: start: 20180503
  10. LUCENTIS [Suspect]
     Active Substance: RANIBIZUMAB
     Dosage: 0.5 MG, 1X IN LEFT EYE
     Route: 031
     Dates: start: 20180628
  11. LUCENTIS [Suspect]
     Active Substance: RANIBIZUMAB
     Dosage: 0.5 MG, 1X IN RIGHT EYE
     Route: 031
     Dates: start: 20180726
  12. LUCENTIS [Suspect]
     Active Substance: RANIBIZUMAB
     Dosage: 0.5 MG, 1X IN RIGHT EYE
     Route: 031
     Dates: start: 20180823
  13. LUCENTIS [Suspect]
     Active Substance: RANIBIZUMAB
     Dosage: 0.5 MG, 1X IN LEFT EYE
     Route: 031
     Dates: start: 20170123
  14. LUCENTIS [Suspect]
     Active Substance: RANIBIZUMAB
     Dosage: 0.5 MG, 1X IN RIGHT EYE
     Route: 031
     Dates: start: 20180705
  15. LUCENTIS [Suspect]
     Active Substance: RANIBIZUMAB
     Indication: DIABETIC RETINAL OEDEMA
     Dosage: 0.5 MG, 1X IN LEFT EYE
     Route: 031
     Dates: start: 20161219
  16. LUCENTIS [Suspect]
     Active Substance: RANIBIZUMAB
     Dosage: 0.5 MG, 1X IN LEFT EYE
     Route: 031
     Dates: start: 20170220
  17. LUCENTIS [Suspect]
     Active Substance: RANIBIZUMAB
     Dosage: 0.5 MG, 1X IN LEFT EYE
     Route: 031
     Dates: start: 20171109
  18. LUCENTIS [Suspect]
     Active Substance: RANIBIZUMAB
     Dosage: 0.5 MG, 1X IN LEFT EYE
     Route: 031
     Dates: start: 20170914
  19. LUCENTIS [Suspect]
     Active Substance: RANIBIZUMAB
     Dosage: 0.5 MG, 1X IN LEFT EYE
     Route: 031
     Dates: start: 20180301
  20. LUCENTIS [Suspect]
     Active Substance: RANIBIZUMAB
     Dosage: 0.5 MG, 1X IN LEFT EYE
     Route: 031
     Dates: start: 20170515
  21. LUCENTIS [Suspect]
     Active Substance: RANIBIZUMAB
     Dosage: 0.5 MG, 1X IN LEFT EYE
     Route: 031
     Dates: start: 20171207
  22. LUCENTIS [Suspect]
     Active Substance: RANIBIZUMAB
     Dosage: 0.5 MG, 1X IN LEFT EYE
     Route: 031
     Dates: start: 20180201, end: 20180201
  23. LUCENTIS [Suspect]
     Active Substance: RANIBIZUMAB
     Dosage: 0.5 MG, 1X IN RIGHT EYE
     Route: 031
     Dates: start: 20180607

REACTIONS (3)
  - Inappropriate schedule of product administration [Unknown]
  - Macular oedema [Not Recovered/Not Resolved]
  - Retinal cyst [Not Recovered/Not Resolved]

NARRATIVE: CASE EVENT DATE: 20180201
